FAERS Safety Report 8437305-3 (Version None)
Quarter: 2012Q2

REPORT INFORMATION
  Report Type: 
  Country: None (occurrence: None)
  Receive Date: 20120614
  Receipt Date: 20120307
  Transmission Date: 20120825
  Serious: No
  Sender: FDA-Public Use
  Company Number: US-AMGEN-USASP2011023258

PATIENT
  Age: 87 Year
  Sex: Female
  Weight: 72.562 kg

DRUGS (23)
  1. ERYTHROMYCIN [Concomitant]
     Dosage: 250 MG, PRN
  2. LEUCOVORIN CALCIUM [Concomitant]
  3. HYDROXYCHLOROQUINE SULFATE [Concomitant]
  4. FUROSEMIDE [Concomitant]
  5. RYBIX [Concomitant]
  6. IBUPROFEN [Concomitant]
     Dosage: UNK, PRN
  7. TEMAZEPAM [Concomitant]
  8. CELEBREX [Concomitant]
  9. PREDNISONE TAB [Concomitant]
     Dosage: 1 MG, QD
  10. ASPIRIN [Concomitant]
  11. CLINDAMYCIN [Concomitant]
     Dosage: UNK, PRN
  12. CENTRUM SILVER                     /01292501/ [Concomitant]
  13. CLONIDINE [Concomitant]
  14. CALCIUM WITH VITAMIN D             /00944201/ [Concomitant]
  15. ENABLEX                            /01760401/ [Concomitant]
  16. IRON [Concomitant]
  17. ATENOLOL [Concomitant]
  18. LEVOTHYROXINE SODIUM [Concomitant]
  19. OMEPRAZOLE [Concomitant]
  20. PROLIA [Suspect]
     Indication: OSTEOPOROSIS POSTMENOPAUSAL
     Dosage: 60 MG, Q6MO
     Dates: start: 20110211, end: 20120221
  21. HYDRALAZINE HYDROCHLORIDE [Concomitant]
  22. SOTALOL HYDROCHLORIDE [Concomitant]
  23. CYMBALTA [Concomitant]
     Dosage: UNK

REACTIONS (3)
  - RASH PAPULAR [None]
  - DENTAL DISCOMFORT [None]
  - CONTUSION [None]
